FAERS Safety Report 6132788-6 (Version None)
Quarter: 2009Q1

REPORT INFORMATION
  Report Type: 
  Country: None (occurrence: None)
  Receive Date: 20090326
  Receipt Date: 20090320
  Transmission Date: 20090719
  Serious: Yes (Hospitalization)
  Sender: FDA-Public Use
  Company Number: DE-BAYER-200916818GPV

PATIENT
  Sex: Female

DRUGS (1)
  1. PRIMOVIST [Suspect]
     Indication: DRUG USE FOR UNKNOWN INDICATION
     Route: 065
     Dates: start: 20090320

REACTIONS (4)
  - ADVERSE EVENT [None]
  - CARDIOVASCULAR DISORDER [None]
  - CHILLS [None]
  - HYPERHIDROSIS [None]
